FAERS Safety Report 4613862-X (Version None)
Quarter: 2005Q1

REPORT INFORMATION
  Report Type: 
  Country: None (occurrence: None)
  Receive Date: 20050321
  Receipt Date: 20050311
  Transmission Date: 20050727
  Serious: Yes (Other)
  Sender: FDA-Public Use
  Company Number: PHBS2005BR03631

PATIENT
  Age: 15 Year
  Sex: Male
  Weight: 72 kg

DRUGS (3)
  1. TEGRETOL [Suspect]
     Indication: CONVULSION
     Dosage: 400 MG, QD
     Route: 048
     Dates: start: 20030101
  2. ENALAPRIL [Concomitant]
     Indication: BLOOD PRESSURE ABNORMAL
     Dosage: 1.5 X 5 MG/DAY
     Route: 048
     Dates: start: 19980101
  3. OXYBUTYNIN [Concomitant]
     Indication: NEUROGENIC BLADDER
     Dosage: 5 MG, QD
     Route: 048

REACTIONS (12)
  - CALCULUS BLADDER [None]
  - ESCHERICHIA INFECTION [None]
  - GAMMA-GLUTAMYLTRANSFERASE INCREASED [None]
  - HEPATIC ENZYME INCREASED [None]
  - HYPERTENSION [None]
  - MONOCYTE COUNT INCREASED [None]
  - NEUTROPHIL COUNT INCREASED [None]
  - NEUTROPHIL TOXIC GRANULATION PRESENT [None]
  - PROTEIN URINE PRESENT [None]
  - URINARY TRACT INFECTION [None]
  - WHITE BLOOD CELL COUNT INCREASED [None]
  - WHITE BLOOD CELLS URINE POSITIVE [None]
